FAERS Safety Report 16359432 (Version 2)
Quarter: 2019Q2

REPORT INFORMATION
  Report Type: Spontaneous
  Country: US (occurrence: US)
  Receive Date: 20190528
  Receipt Date: 20190606
  Transmission Date: 20190711
  Serious: Yes (Other)
  Sender: FDA-Public Use
  Company Number: US-AUROBINDO-AUR-APL-2019-028672

PATIENT

DRUGS (2)
  1. SUMATRIPTAN TABLETS 100MG [Suspect]
     Active Substance: SUMATRIPTAN
     Indication: MIGRAINE
     Dosage: 100 MILLIGRAM, DAILY(AS NEEDED)
     Route: 048
  2. SUMATRIPTAN TABLETS 100MG [Suspect]
     Active Substance: SUMATRIPTAN
     Dosage: 100 MILLIGRAM, DAILY
     Route: 048

REACTIONS (4)
  - Headache [Unknown]
  - Withdrawal syndrome [Unknown]
  - Cardiac discomfort [Unknown]
  - Respiratory arrest [Unknown]
